FAERS Safety Report 9399166 (Version 1)
Quarter: 2013Q3

REPORT INFORMATION
  Report Type: Spontaneous
  Country: RS (occurrence: None)
  Receive Date: 20130709
  Receipt Date: 20130709
  Transmission Date: 20140515
  Serious: Yes (Other)
  Sender: FDA-Public Use
  Company Number: VAL_02617_2013

PATIENT
  Age: 32 Year
  Sex: Female

DRUGS (4)
  1. METOPROLOL (METOPROLOL-METOPROLOL TARTRATE) [Suspect]
     Indication: PRODUCT USED FOR UNKNOWN INDICATION
     Dosage: (DF [REGIMEN  # 1])
  2. AMIODARONE [Suspect]
     Indication: PRODUCT USED FOR UNKNOWN INDICATION
     Dosage: (DF)
  3. VERAPAMIL (VERAPAMIL) [Suspect]
     Indication: PRODUCT USED FOR UNKNOWN INDICATION
     Dosage: (DF)
  4. ADENOSINE [Suspect]
     Indication: PRODUCT USED FOR UNKNOWN INDICATION
     Dosage: (DF,  (NOT OTHERWISE SPECIFIED)
     Route: 042

REACTIONS (5)
  - Maternal exposure during pregnancy [None]
  - Hypotension [None]
  - Haemodynamic instability [None]
  - Nodal arrhythmia [None]
  - Conduction disorder [None]
